FAERS Safety Report 18110245 (Version 1)
Quarter: 2020Q3

REPORT INFORMATION
  Report Type: Spontaneous
  Country: SE (occurrence: SE)
  Receive Date: 20200804
  Receipt Date: 20200804
  Transmission Date: 20201103
  Serious: Yes (Life-Threatening, Other)
  Sender: FDA-Public Use
  Company Number: SE-SA-2020SA200820

PATIENT

DRUGS (7)
  1. BETAPRED [Concomitant]
     Active Substance: BETAMETHASONE SODIUM PHOSPHATE
     Dosage: UNK
     Dates: start: 20200515
  2. URSOFALK [Concomitant]
     Active Substance: URSODIOL
     Dosage: UNK
     Dates: start: 20190801
  3. ONDANSETRON [Concomitant]
     Active Substance: ONDANSETRON
     Dosage: UNK
     Dates: start: 20200515
  4. OXALIPLATIN. [Suspect]
     Active Substance: OXALIPLATIN
     Dosage: 280 MG, QD
     Route: 042
     Dates: start: 20200604, end: 20200604
  5. OXALIPLATIN. [Suspect]
     Active Substance: OXALIPLATIN
     Dosage: 280 MG, QD
     Route: 042
     Dates: start: 20200626, end: 20200626
  6. LOPERAMID [Concomitant]
     Active Substance: LOPERAMIDE
     Dosage: UNK (VB)
     Dates: start: 20200429
  7. CAPECITABINE. [Suspect]
     Active Substance: CAPECITABINE
     Dosage: UNK (4+4 (UNDER 14 DAYS))
     Route: 048
     Dates: start: 20200604, end: 20200710

REACTIONS (1)
  - Ventricular fibrillation [Recovered/Resolved]

NARRATIVE: CASE EVENT DATE: 20200711
